FAERS Safety Report 7996648-8 (Version None)
Quarter: 2011Q4

REPORT INFORMATION
  Report Type: 
  Country: None (occurrence: None)
  Receive Date: 20111221
  Receipt Date: 20111208
  Transmission Date: 20120403
  Serious: Yes (Hospitalization, Other)
  Sender: FDA-Public Use
  Company Number: CA-ELI_LILLY_AND_COMPANY-CA201112003490

PATIENT
  Age: 90 Year
  Sex: Female

DRUGS (13)
  1. PILOCARPINE [Concomitant]
     Dosage: UNK, UNKNOWN
     Route: 065
  2. MAGNESIUM [Concomitant]
     Dosage: UNK, UNKNOWN
     Route: 065
  3. POTASSIUM CHLORIDE [Concomitant]
     Dosage: UNK, UNKNOWN
     Route: 065
  4. ULTRAM [Concomitant]
     Dosage: UNK, UNKNOWN
     Route: 065
  5. LORATADINE [Concomitant]
     Dosage: UNK, UNKNOWN
     Route: 065
  6. ZOPICLONE [Concomitant]
     Dosage: UNK, UNKNOWN
     Route: 065
  7. CALCIUM [Concomitant]
     Dosage: UNK, UNKNOWN
     Route: 065
  8. PREDNISONE TAB [Concomitant]
     Dosage: UNK, UNKNOWN
     Route: 065
  9. ALBUTEROL SULFATE AUTOHALER [Concomitant]
     Dosage: UNK, UNKNOWN
     Route: 065
  10. HYDROCHLOROTHIAZIDE [Concomitant]
     Dosage: UNK, UNKNOWN
     Route: 065
  11. FORTEO [Suspect]
     Indication: OSTEOPOROSIS
     Dosage: 20 UG, QD
     Route: 058
     Dates: start: 20110722, end: 20111124
  12. AZOPT [Concomitant]
     Dosage: UNK, UNKNOWN
     Route: 065
  13. BRIMONIDINE TARTRATE [Concomitant]
     Dosage: UNK, UNKNOWN
     Route: 065

REACTIONS (2)
  - HIP FRACTURE [None]
  - LIGAMENT SPRAIN [None]
